FAERS Safety Report 18351753 (Version 2)
Quarter: 2021Q1

REPORT INFORMATION
  Report Type: Spontaneous
  Country: PT (occurrence: PT)
  Receive Date: 20201006
  Receipt Date: 20210205
  Transmission Date: 20210419
  Serious: Yes (Hospitalization, Other)
  Sender: FDA-Public Use
  Company Number: PT-KOWA-20EU002878

PATIENT

DRUGS (1)
  1. PITAVASTATIN. [Suspect]
     Active Substance: PITAVASTATIN CALCIUM
     Indication: DYSLIPIDAEMIA
     Dosage: UNK
     Route: 065

REACTIONS (3)
  - Toxic skin eruption [Recovering/Resolving]
  - Oedema peripheral [Unknown]
  - Liver function test increased [Unknown]
